FAERS Safety Report 13754958 (Version 1)
Quarter: 2017Q3

REPORT INFORMATION
  Report Type: Spontaneous
  Country: US (occurrence: US)
  Receive Date: 20170714
  Receipt Date: 20170714
  Transmission Date: 20171127
  Serious: Yes (Disabling)
  Sender: FDA-Public Use
  Company Number: US-IPSEN BIOPHARMACEUTICALS, INC.-2017-04250

PATIENT
  Age: 52 Year
  Sex: Female
  Weight: 85 kg

DRUGS (12)
  1. PREDNISONE. [Concomitant]
     Active Substance: PREDNISONE
     Indication: CONNECTIVE TISSUE DISORDER
     Dates: start: 2014, end: 201705
  2. PREDNISONE. [Concomitant]
     Active Substance: PREDNISONE
     Indication: MYALGIA
     Dates: start: 201705, end: 201705
  3. DYSPORT [Suspect]
     Active Substance: ABOBOTULINUMTOXINA
     Indication: SKIN WRINKLING
     Dosage: 210 UNITS
     Route: 030
     Dates: start: 20170506, end: 20170506
  4. PREDNISONE. [Concomitant]
     Active Substance: PREDNISONE
     Dates: start: 201705, end: 201705
  5. PREDNISONE. [Concomitant]
     Active Substance: PREDNISONE
     Dates: start: 201705
  6. PROGESTERONE. [Concomitant]
     Active Substance: PROGESTERONE
  7. DYSPORT [Suspect]
     Active Substance: ABOBOTULINUMTOXINA
     Indication: SKIN WRINKLING
  8. DYSPORT [Suspect]
     Active Substance: ABOBOTULINUMTOXINA
     Indication: OFF LABEL USE
  9. OMEPRAZOLE. [Concomitant]
     Active Substance: OMEPRAZOLE
  10. CITALOPRAM [Concomitant]
     Active Substance: CITALOPRAM HYDROBROMIDE
     Dates: start: 2012
  11. DYSPORT [Suspect]
     Active Substance: ABOBOTULINUMTOXINA
     Indication: SKIN WRINKLING
  12. ESTROGEN [Concomitant]
     Active Substance: ESTROGENS

REACTIONS (6)
  - Skin tightness [Recovering/Resolving]
  - Injection site pain [Recovered/Resolved]
  - Headache [Recovered/Resolved]
  - Off label use [Unknown]
  - Product preparation error [Unknown]
  - Injection site oedema [Recovered/Resolved]

NARRATIVE: CASE EVENT DATE: 20170509
